FAERS Safety Report 8848572 (Version 1)
Quarter: 2012Q4

REPORT INFORMATION
  Report Type: 
  Country: FR (occurrence: FR)
  Receive Date: 20121018
  Receipt Date: 20121018
  Transmission Date: 20130627
  Serious: Yes (Other)
  Sender: FDA-Public Use
  Company Number: FR-GLAXOSMITHKLINE-B0836282A

PATIENT
  Sex: Female

DRUGS (5)
  1. LAMICTAL [Suspect]
     Indication: BIPOLAR DISORDER
     Route: 048
     Dates: start: 201207, end: 201208
  2. CYMBALTA [Concomitant]
     Indication: BIPOLAR DISORDER
  3. ZOPICLONE [Concomitant]
     Indication: BIPOLAR DISORDER
  4. LYSANXIA [Concomitant]
     Indication: BIPOLAR DISORDER
  5. DEPAMIDE [Concomitant]
     Indication: BIPOLAR DISORDER

REACTIONS (10)
  - Polyneuropathy [Not Recovered/Not Resolved]
  - Gait disturbance [Not Recovered/Not Resolved]
  - Weight decreased [Not Recovered/Not Resolved]
  - Sensory loss [Not Recovered/Not Resolved]
  - Hyperhidrosis [Not Recovered/Not Resolved]
  - Amnesia [Not Recovered/Not Resolved]
  - Tremor [Not Recovered/Not Resolved]
  - Decreased appetite [Not Recovered/Not Resolved]
  - Angioedema [Recovered/Resolved]
  - Pyrexia [Recovered/Resolved]
